FAERS Safety Report 15578388 (Version 1)
Quarter: 2018Q4

REPORT INFORMATION
  Report Type: Spontaneous
  Country: NL (occurrence: NL)
  Receive Date: 20181102
  Receipt Date: 20181102
  Transmission Date: 20190205
  Serious: Yes (Hospitalization, Other)
  Sender: FDA-Public Use
  Company Number: NL-AUROBINDO-AUR-APL-2018-035097

PATIENT
  Age: 19 Year
  Sex: Female
  Weight: 63 kg

DRUGS (1)
  1. FLUOXETINE [Suspect]
     Active Substance: FLUOXETINE HYDROCHLORIDE
     Indication: DEPRESSION
     Dosage: 20 MILLIGRAM, ONCE A DAY
     Route: 065
     Dates: start: 20180603, end: 20180715

REACTIONS (2)
  - Dyspnoea [Recovering/Resolving]
  - Cardiac failure [Recovered/Resolved with Sequelae]

NARRATIVE: CASE EVENT DATE: 20180607
